FAERS Safety Report 5645385-3 (Version None)
Quarter: 2008Q1

REPORT INFORMATION
  Report Type: 
  Country: None (occurrence: None)
  Receive Date: 20080229
  Receipt Date: 20080225
  Transmission Date: 20080703
  Serious: Yes (Death)
  Sender: FDA-Public Use
  Company Number: US-MERCK-0802USA05468

PATIENT
  Age: 39 Year
  Sex: Female

DRUGS (6)
  1. ISENTRESS [Suspect]
     Indication: HIV INFECTION
     Route: 048
     Dates: start: 20071201
  2. FUZEON [Concomitant]
     Route: 065
  3. NORVIR [Concomitant]
     Route: 065
  4. TRUVADA [Concomitant]
     Route: 065
  5. BIAXIN [Concomitant]
     Route: 065
  6. [THERAPY UNSPECIFIED] [Concomitant]
     Route: 065

REACTIONS (3)
  - ANAEMIA [None]
  - DEATH [None]
  - THROMBOCYTOPENIA [None]
